FAERS Safety Report 6849163-9 (Version None)
Quarter: 2010Q3

REPORT INFORMATION
  Report Type: 
  Country: None (occurrence: None)
  Receive Date: 20100716
  Receipt Date: 20100706
  Transmission Date: 20110219
  Serious: Yes (Other)
  Sender: FDA-Public Use
  Company Number: PHHY2010US36413

PATIENT
  Sex: Female
  Weight: 72.562 kg

DRUGS (4)
  1. RECLAST [Suspect]
     Indication: OSTEOPOROSIS
     Dosage: ONE AMPULE
     Dates: start: 20100514
  2. LORTAB [Concomitant]
     Indication: ARTHRITIS
     Route: 048
  3. HYDROCHLOROTHIAZIDE [Concomitant]
     Indication: HYPERTENSION
     Dosage: UNK
     Route: 048
  4. LUNESTA [Concomitant]
     Indication: INSOMNIA
     Dosage: EVERY 8 HOURS
     Route: 048

REACTIONS (6)
  - INFLUENZA LIKE ILLNESS [None]
  - MYALGIA [None]
  - NAUSEA [None]
  - NERVE INJURY [None]
  - TENDONITIS [None]
  - TINNITUS [None]
